FAERS Safety Report 8317156-0 (Version None)
Quarter: 2012Q2

REPORT INFORMATION
  Report Type: 
  Country: None (occurrence: None)
  Receive Date: 20120427
  Receipt Date: 20120418
  Transmission Date: 20120825
  Serious: Yes (Hospitalization)
  Sender: FDA-Public Use
  Company Number: US-PFIZER INC-2012097743

PATIENT
  Sex: Female
  Weight: 60.68 kg

DRUGS (13)
  1. HYDROMORPHONE HYDROCHLORIDE [Concomitant]
  2. FENTANYL [Concomitant]
  3. POLYETHYLENE GLYCOL [Concomitant]
  4. LORAZEPAM [Concomitant]
     Dosage: UNK
     Dates: start: 20110803
  5. BLINDED THERAPY [Suspect]
     Indication: COLORECTAL CANCER METASTATIC
     Dosage: UNK
     Route: 042
     Dates: start: 20120227, end: 20120227
  6. ONDANSETRON HYDROCHLORIDE [Concomitant]
  7. PROCHLORPERAZINE [Concomitant]
  8. FLUOROURACIL [Suspect]
     Indication: COLORECTAL CANCER METASTATIC
     Dosage: 400 MG/M2, IV BOLUS ON DAY 1 EVERY 14 DAYS FOLLOWED BY 2400 MG/M2 IV ON DAYS 1 AND 2 EVERY 14 DAYS
     Dates: start: 20120227, end: 20120227
  9. MAGNESIUM CITRATE [Concomitant]
  10. ALPRAZOLAM [Concomitant]
  11. IRINOTECAN HCL [Suspect]
     Indication: COLORECTAL CANCER METASTATIC
     Dosage: 180 MG/M2, DAY 1 EVERY 14 DAYS
     Route: 042
     Dates: start: 20120227, end: 20120227
  12. LEUCOVORIN CALCIUM [Suspect]
     Indication: COLORECTAL CANCER METASTATIC
     Dosage: 400 MG/M2, DAY 1 EVERY 14 DAYS
     Route: 042
     Dates: start: 20120227, end: 20120227
  13. MEGESTROL ACETATE [Concomitant]

REACTIONS (1)
  - ENTEROCOLITIS [None]
